FAERS Safety Report 9067956 (Version 3)
Quarter: 2013Q4

REPORT INFORMATION
  Report Type: Report from Study
  Country: CN (occurrence: CN)
  Receive Date: 20130128
  Receipt Date: 20131017
  Transmission Date: 20140711
  Serious: Yes (Hospitalization)
  Sender: FDA-Public Use
  Company Number: CN-US-EMD SERONO, INC.-7187532

PATIENT
  Age: 26 Year
  Sex: Female
  Weight: 60 kg

DRUGS (4)
  1. GONAL-F [Suspect]
     Indication: IN VITRO FERTILISATION
     Route: 058
     Dates: start: 20120811, end: 20120819
  2. HCG [Concomitant]
     Indication: OVULATION INDUCTION
     Route: 030
     Dates: start: 20121107, end: 20121107
  3. LUVERIS [Concomitant]
     Indication: OVULATION INDUCTION
     Route: 058
     Dates: start: 20121106, end: 20121106
  4. DECAPEPTYL [Concomitant]
     Indication: ADJUVANT THERAPY
     Route: 058
     Dates: start: 20121012, end: 20121107

REACTIONS (1)
  - Ovarian hyperstimulation syndrome [Recovered/Resolved]
